FAERS Safety Report 9059630 (Version 3)
Quarter: 2013Q2

REPORT INFORMATION
  Report Type: Spontaneous
  Country: US (occurrence: US)
  Receive Date: 20130212
  Receipt Date: 20130422
  Transmission Date: 20140414
  Serious: Yes (Hospitalization, Other)
  Sender: FDA-Public Use
  Company Number: US-009507513-1302USA003798

PATIENT
  Age: 63 Year
  Sex: Male

DRUGS (4)
  1. PEGINTRON [Suspect]
     Indication: HEPATITIS C
     Dosage: REDIPEN
     Route: 058
     Dates: start: 20130131, end: 20130228
  2. RIBAPAK [Suspect]
     Indication: HEPATITIS C
     Dosage: 800 MG, QD
     Route: 048
     Dates: start: 20130131, end: 20130228
  3. LASIX (FUROSEMIDE) [Concomitant]
  4. ALDACTONE TABLETS [Concomitant]

REACTIONS (7)
  - Anaemia [Recovered/Resolved]
  - Back pain [Unknown]
  - Decreased appetite [Unknown]
  - Asthenia [Unknown]
  - Dyspnoea [Unknown]
  - Depression [Unknown]
  - Abdominal distension [Unknown]
